FAERS Safety Report 6849224-4 (Version None)
Quarter: 2010Q3

REPORT INFORMATION
  Report Type: 
  Country: None (occurrence: None)
  Receive Date: 20100716
  Receipt Date: 20071015
  Transmission Date: 20110219
  Serious: No
  Sender: FDA-Public Use
  Company Number: US-PFIZER INC-2007081974

PATIENT
  Sex: Female
  Weight: 61.363 kg

DRUGS (2)
  1. CHANTIX [Suspect]
     Indication: SMOKING CESSATION THERAPY
     Dates: start: 20070901
  2. VITAMINS [Concomitant]

REACTIONS (2)
  - CHEST PAIN [None]
  - MEDICATION ERROR [None]
